FAERS Safety Report 10142543 (Version 1)
Quarter: 2014Q2

REPORT INFORMATION
  Report Type: Report from Study
  Country: US (occurrence: US)
  Receive Date: 20140430
  Receipt Date: 20140430
  Transmission Date: 20141212
  Serious: Yes (Hospitalization)
  Sender: FDA-Public Use
  Company Number: US-BRISTOL-MYERS SQUIBB COMPANY-20663308

PATIENT
  Age: 77 Year
  Sex: Male

DRUGS (6)
  1. COUMADIN [Suspect]
     Indication: ANTICOAGULANT THERAPY
     Dates: end: 201309
  2. REMICADE [Suspect]
     Indication: ARTHRITIS
     Dosage: DOSE:EVERY 6-8 WEEKS
     Route: 042
  3. XARELTO [Suspect]
     Indication: TRANSIENT ISCHAEMIC ATTACK
     Dosage: TABS
     Route: 048
     Dates: start: 201309
  4. LEVOTHYROXINE [Concomitant]
  5. METFORMIN [Concomitant]
     Indication: DIABETES MELLITUS
     Dosage: TABS
     Route: 048
  6. LISINOPRIL [Concomitant]
     Indication: BLOOD PRESSURE
     Dosage: TABS
     Route: 048

REACTIONS (4)
  - Transient ischaemic attack [Not Recovered/Not Resolved]
  - Visual field defect [Recovered/Resolved]
  - Heart rate decreased [Recovered/Resolved]
  - Nasopharyngitis [Recovered/Resolved]
